FAERS Safety Report 11451199 (Version 2)
Quarter: 2015Q3

REPORT INFORMATION
  Report Type: Spontaneous
  Country: US (occurrence: US)
  Receive Date: 20150903
  Receipt Date: 20150914
  Transmission Date: 20151125
  Serious: Yes (Other)
  Sender: FDA-Public Use
  Company Number: US-MACLEODS PHARMACEUTICALS US LTD-MAC2015001965

PATIENT

DRUGS (1)
  1. PIOGLITAZONE TABLET [Suspect]
     Active Substance: PIOGLITAZONE
     Indication: PRODUCT USED FOR UNKNOWN INDICATION
     Dosage: TAKING 4-5 TABLETS
     Route: 048

REACTIONS (1)
  - Depression [Recovered/Resolved]
